FAERS Safety Report 6307568-9 (Version None)
Quarter: 2009Q3

REPORT INFORMATION
  Report Type: 
  Country: None (occurrence: None)
  Receive Date: 20090813
  Receipt Date: 20090804
  Transmission Date: 20100115
  Serious: Yes (Hospitalization)
  Sender: FDA-Public Use
  Company Number: US-ELI_LILLY_AND_COMPANY-US200908001215

PATIENT
  Age: 77 Year
  Sex: Female

DRUGS (4)
  1. FORTEO [Suspect]
     Indication: OSTEOPOROSIS
     Dosage: UNK, UNK
     Dates: start: 20090701, end: 20090101
  2. PREDNISONE [Concomitant]
  3. REMICADE [Concomitant]
  4. ENBREL [Concomitant]

REACTIONS (2)
  - COMA [None]
  - SPINAL FRACTURE [None]
